FAERS Safety Report 25682297 (Version 2)
Quarter: 2025Q3

REPORT INFORMATION
  Report Type: Spontaneous
  Country: BR (occurrence: BR)
  Receive Date: 20250814
  Receipt Date: 20250822
  Transmission Date: 20251021
  Serious: Yes (Hospitalization)
  Sender: FRESENIUS KABI
  Company Number: BR-FreseniusKabi-FK202511245

PATIENT
  Age: 79 Year
  Sex: Female
  Weight: 79 kg

DRUGS (4)
  1. OXACILLIN SODIUM [Suspect]
     Active Substance: OXACILLIN SODIUM
     Indication: Antibiotic therapy
     Dosage: EACH VIAL WAS RECONSTITUTED WITH 5 MILLILITERS OF DISTILLED WATER (2000MG DOSE - 4 VIALS). THE 20 MI
     Route: 042
     Dates: start: 20250731, end: 20250808
  2. OXACILLIN SODIUM [Suspect]
     Active Substance: OXACILLIN SODIUM
     Indication: Staphylococcal infection
  3. distilled water [Concomitant]
     Indication: Vehicle solution use
     Route: 042
     Dates: start: 20250731, end: 20250808
  4. 0.9 percent saline solution [Concomitant]
     Indication: Vehicle solution use
     Route: 042
     Dates: start: 20250731, end: 20250808

REACTIONS (2)
  - Papule [Recovered/Resolved]
  - Pruritus [Recovered/Resolved]

NARRATIVE: CASE EVENT DATE: 20250808
